FAERS Safety Report 8274515-2 (Version None)
Quarter: 2012Q2

REPORT INFORMATION
  Report Type: 
  Country: None (occurrence: None)
  Receive Date: 20120411
  Receipt Date: 20120328
  Transmission Date: 20120825
  Serious: Yes (Life-Threatening, Hospitalization)
  Sender: FDA-Public Use
  Company Number: FR-WATSON-2012-05903

PATIENT
  Sex: Male
  Weight: 74 kg

DRUGS (5)
  1. NEBIVOLOL HCL [Concomitant]
     Indication: HYPERTENSION
     Dosage: 5 MG, ONE TABLET DAILY
     Route: 065
  2. PANTOPRAZOLE SODIUM [Concomitant]
     Indication: GASTROOESOPHAGEAL REFLUX DISEASE
     Dosage: 20 MG, ONE TABLET DAILY
     Route: 065
  3. RAPAFLO [Suspect]
     Indication: BENIGN PROSTATIC HYPERPLASIA
     Dosage: ONE CAPSULE DAILY
     Route: 048
     Dates: start: 20120301, end: 20120322
  4. ATORVASTATIN [Concomitant]
     Indication: DYSLIPIDAEMIA
     Dosage: ONE TABLET DAILY
     Route: 065
  5. PERMIXON [Concomitant]
     Indication: PROSTATIC ADENOMA
     Dosage: 2 TABLETS DAILY
     Route: 065

REACTIONS (3)
  - CONVULSION [None]
  - MALAISE [None]
  - VISUAL IMPAIRMENT [None]
